FAERS Safety Report 7609421-7 (Version None)
Quarter: 2011Q3

REPORT INFORMATION
  Report Type: 
  Country: None (occurrence: None)
  Receive Date: 20110714
  Receipt Date: 20110706
  Transmission Date: 20111222
  Serious: Yes (Other)
  Sender: FDA-Public Use
  Company Number: CA-JNJFOC-20110703421

PATIENT
  Sex: Male
  Weight: 66.23 kg

DRUGS (1)
  1. REMICADE [Suspect]
     Indication: COLITIS ULCERATIVE
     Route: 042
     Dates: start: 20110119

REACTIONS (4)
  - PYREXIA [None]
  - BLOOD URINE PRESENT [None]
  - CHILLS [None]
  - DYSURIA [None]
